FAERS Safety Report 24794909 (Version 1)
Quarter: 2024Q4

REPORT INFORMATION
  Report Type: Spontaneous
  Country: GB (occurrence: GB)
  Receive Date: 20241231
  Receipt Date: 20241231
  Transmission Date: 20250115
  Serious: Yes (Hospitalization, Other)
  Sender: MYLAN
  Company Number: GB-MYLANLABS-2024M1105794

PATIENT
  Sex: Male

DRUGS (1)
  1. CLOZARIL [Suspect]
     Active Substance: CLOZAPINE
     Indication: Schizophrenia
     Dosage: 300 MILLIGRAM, PM (AT NIGHT)
     Route: 048
     Dates: start: 19910426, end: 20241119

REACTIONS (8)
  - Prothrombin time ratio increased [Unknown]
  - C-reactive protein increased [Unknown]
  - Blood creatinine decreased [Unknown]
  - Fall [Unknown]
  - Asthenia [Unknown]
  - Constipation [Unknown]
  - Thrombocytosis [Unknown]
  - Delirium [Unknown]

NARRATIVE: CASE EVENT DATE: 20241115
